FAERS Safety Report 13690217 (Version 1)
Quarter: 2017Q2

REPORT INFORMATION
  Report Type: Spontaneous
  Country: US (occurrence: US)
  Receive Date: 20170626
  Receipt Date: 20170626
  Transmission Date: 20170830
  Serious: Yes (Other)
  Sender: FDA-Public Use
  Company Number: US-BAYER-2017-117410

PATIENT
  Sex: Female

DRUGS (14)
  1. AZITHROMYCIN ANHYDROUS. [Concomitant]
     Active Substance: AZITHROMYCIN ANHYDROUS
  2. PREDNISONE. [Concomitant]
     Active Substance: PREDNISONE
  3. DIAZEPAM. [Concomitant]
     Active Substance: DIAZEPAM
     Dosage: 1 MG, UNK
  4. OXYCODON [Concomitant]
     Active Substance: OXYCODONE
  5. PROAIR HFA [Concomitant]
     Active Substance: ALBUTEROL SULFATE
  6. ADVAIR DISKUS [Concomitant]
     Active Substance: FLUTICASONE PROPIONATE\SALMETEROL XINAFOATE
  7. GABAPENTIN. [Concomitant]
     Active Substance: GABAPENTIN
  8. RANITIDINE HYDROCHLORIDE. [Concomitant]
     Active Substance: RANITIDINE HYDROCHLORIDE
  9. AMFETAMINE [Concomitant]
     Active Substance: AMPHETAMINE
     Dosage: 30 MG, UNK
  10. IBUPROFEN. [Concomitant]
     Active Substance: IBUPROFEN
  11. BETASERON [Suspect]
     Active Substance: INTERFERON BETA-1B
     Indication: MULTIPLE SCLEROSIS
     Dosage: 0.25 MG, QOD
     Route: 058
     Dates: start: 2002
  12. HUMIRA [Concomitant]
     Active Substance: ADALIMUMAB
     Dosage: 40 MG, UNK
  13. APRESA [Concomitant]
     Dosage: 0.375 UNK, UNK
  14. FENTANYL. [Concomitant]
     Active Substance: FENTANYL

REACTIONS (11)
  - Muscle spasms [None]
  - Decreased appetite [None]
  - Bone swelling [None]
  - Vitamin D abnormal [None]
  - Large intestine polyp [None]
  - Oral pain [None]
  - Abdominal pain [None]
  - Colon cancer [None]
  - Vitamin B12 abnormal [None]
  - Arthralgia [None]
  - Diarrhoea [None]
